FAERS Safety Report 22604584 (Version 1)
Quarter: 2023Q2

REPORT INFORMATION
  Report Type: Spontaneous
  Country: US (occurrence: US)
  Receive Date: 20230615
  Receipt Date: 20230615
  Transmission Date: 20230721
  Serious: Yes (Hospitalization)
  Sender: FDA-Public Use
  Company Number: US-MYLANLABS-2023M1062625

PATIENT
  Age: 33 Year
  Sex: Male

DRUGS (5)
  1. VANCOMYCIN [Suspect]
     Active Substance: VANCOMYCIN
     Indication: Monkeypox
     Dosage: UNK
     Route: 065
  2. VANCOMYCIN [Suspect]
     Active Substance: VANCOMYCIN
     Indication: Evidence based treatment
  3. CEFTRIAXONE [Suspect]
     Active Substance: CEFTRIAXONE
     Indication: Monkeypox
     Dosage: UNK
     Route: 065
  4. FLAGYL [Suspect]
     Active Substance: METRONIDAZOLE\METRONIDAZOLE HYDROCHLORIDE
     Indication: Monkeypox
     Dosage: UNK
     Route: 065
  5. TECOVIRIMAT [Suspect]
     Active Substance: TECOVIRIMAT
     Indication: Monkeypox
     Dosage: 600 MILLIGRAM, BID (Q12H)
     Route: 065

REACTIONS (1)
  - Drug ineffective [Unknown]
